FAERS Safety Report 20947445 (Version 3)
Quarter: 2022Q4

REPORT INFORMATION
  Report Type: Report from Study
  Country: US (occurrence: None)
  Receive Date: 20220610
  Receipt Date: 20221109
  Transmission Date: 20230112
  Serious: Yes (Hospitalization)
  Sender: FDA-Public Use
  Company Number: US-ROCHE-3111493

PATIENT
  Age: 78 Year
  Sex: Female
  Weight: 48.5 kg

DRUGS (4)
  1. ATEZOLIZUMAB [Suspect]
     Active Substance: ATEZOLIZUMAB
     Indication: Adenocarcinoma of colon
     Dosage: OVER 30-60 MINUTES STARTING ON DAY 1 OF CYCLE 1 OR 2, 840MG IV ON DAY 1, TOTAL DOSE: 840MG
     Route: 041
     Dates: start: 20220223
  2. LEUCOVORIN CALCIUM [Suspect]
     Active Substance: LEUCOVORIN CALCIUM
     Indication: Adenocarcinoma of colon
     Dosage: TOTAL DOSE: 600 MG
     Route: 042
     Dates: start: 20220223
  3. FLUOROURACIL [Suspect]
     Active Substance: FLUOROURACIL
     Indication: Adenocarcinoma of colon
     Dosage: 400MG/M2 IV (BOLUS) ON DAY 1 FOLLOWED BY 2400MG/M2 IV OVER 46 HOURS DAYS 1-3, TOTAL DOSE ADMINISTERE
     Route: 042
     Dates: start: 20220223
  4. OXALIPLATIN [Suspect]
     Active Substance: OXALIPLATIN
     Indication: Adenocarcinoma of colon
     Dosage: TOTAL DOSE: 120MG
     Route: 042
     Dates: start: 20220223

REACTIONS (5)
  - Pneumonia [Unknown]
  - Pyrexia [Recovered/Resolved]
  - Neutropenic sepsis [Unknown]
  - White blood cell count decreased [Recovered/Resolved]
  - Neutrophil count decreased [Recovered/Resolved]

NARRATIVE: CASE EVENT DATE: 20220427
